FAERS Safety Report 25987128 (Version 1)
Quarter: 2025Q4

REPORT INFORMATION
  Report Type: Other
  Country: EU (occurrence: EU)
  Receive Date: 20251103
  Receipt Date: 20251103
  Transmission Date: 20260118
  Serious: Yes (Hospitalization)
  Sender: ANI
  Company Number: EU-ANIPHARMA-031017

PATIENT
  Age: 80 Year
  Sex: Male

DRUGS (3)
  1. CEFUROXIME [Suspect]
     Active Substance: CEFUROXIME
     Indication: Sepsis
     Dosage: EMPIRIC TREATMENT
  2. CIPROFLOXACIN [Suspect]
     Active Substance: CIPROFLOXACIN
     Indication: Sepsis
     Dosage: EMPIRIC TREATMENT
  3. MEROPENEM [Concomitant]
     Active Substance: MEROPENEM
     Indication: Sepsis
     Dosage: EMPIRIC TREATMENT

REACTIONS (2)
  - Drug resistance [Unknown]
  - Drug ineffective [Unknown]
